FAERS Safety Report 9580640 (Version 1)
Quarter: 2013Q4

REPORT INFORMATION
  Report Type: Spontaneous
  Country: US (occurrence: None)
  Receive Date: 20131001
  Receipt Date: 20131001
  Transmission Date: 20140711
  Serious: No
  Sender: FDA-Public Use
  Company Number: None

PATIENT
  Sex: Female

DRUGS (1)
  1. ENBREL [Suspect]
     Dosage: 50 MG ONCE WEEKLY
     Route: 058
     Dates: start: 20130918

REACTIONS (4)
  - Dizziness [None]
  - Chest discomfort [None]
  - Dyspnoea [None]
  - Hypoaesthesia [None]
